FAERS Safety Report 12967948 (Version 1)
Quarter: 2016Q4

REPORT INFORMATION
  Report Type: Spontaneous
  Country: US (occurrence: US)
  Receive Date: 20161122
  Receipt Date: 20161122
  Transmission Date: 20170207
  Serious: Yes (Other)
  Sender: FDA-Public Use
  Company Number: None

PATIENT
  Age: 38 Year
  Sex: Male
  Weight: 74.25 kg

DRUGS (2)
  1. CIPROFLAXIN [Suspect]
     Active Substance: CIPROFLOXACIN
     Indication: PROSTATITIS
     Dosage: QUANTITY:1 TABLET(S); DAILY; ORAL?
     Route: 048
  2. NAPROXYN [Concomitant]
     Active Substance: NAPROXEN

REACTIONS (3)
  - Tendonitis [None]
  - Myalgia [None]
  - Incorrect drug administration duration [None]

NARRATIVE: CASE EVENT DATE: 20110601
